FAERS Safety Report 16229737 (Version 3)
Quarter: 2020Q1

REPORT INFORMATION
  Report Type: Spontaneous
  Country: US (occurrence: US)
  Receive Date: 20190423
  Receipt Date: 20200330
  Transmission Date: 20200409
  Serious: Yes (Other)
  Sender: FDA-Public Use
  Company Number: US-GILEAD-2019-0402869

PATIENT
  Age: 35 Year
  Sex: Male

DRUGS (1)
  1. TRUVADA [Suspect]
     Active Substance: EMTRICITABINE\TENOFOVIR DISOPROXIL FUMARATE
     Indication: PROPHYLAXIS AGAINST HIV INFECTION
     Dosage: UNK
     Route: 048
     Dates: start: 20170627, end: 201912

REACTIONS (11)
  - Economic problem [Unknown]
  - Bone loss [Unknown]
  - Pain [Unknown]
  - Fracture [Unknown]
  - Emotional distress [Unknown]
  - Tibia fracture [Not Recovered/Not Resolved]
  - Osteonecrosis [Unknown]
  - Anhedonia [Unknown]
  - Back pain [Not Recovered/Not Resolved]
  - Bone density decreased [Unknown]
  - Anxiety [Unknown]

NARRATIVE: CASE EVENT DATE: 20180322
